FAERS Safety Report 5761073-7 (Version None)
Quarter: 2008Q2

REPORT INFORMATION
  Report Type: 
  Country: None (occurrence: None)
  Receive Date: 20080606
  Receipt Date: 20080606
  Transmission Date: 20081010
  Serious: Yes (Hospitalization)
  Sender: FDA-Public Use
  Company Number: A0731726A

PATIENT
  Age: 30 Year
  Sex: Female

DRUGS (5)
  1. ALLI [Suspect]
  2. VITAMIN E [Concomitant]
  3. ASCORBIC ACID [Concomitant]
  4. MULTI-VITAMIN [Concomitant]
  5. IBUROFEN [Concomitant]

REACTIONS (2)
  - PROCEDURAL PAIN [None]
  - UTERINE PROLAPSE [None]
